FAERS Safety Report 8522211-6 (Version None)
Quarter: 2012Q3

REPORT INFORMATION
  Report Type: 
  Country: None (occurrence: None)
  Receive Date: 20120719
  Receipt Date: 20120705
  Transmission Date: 20120928
  Serious: Yes (Other)
  Sender: FDA-Public Use
  Company Number: GB-ELI_LILLY_AND_COMPANY-GB201206003145

PATIENT
  Sex: Male
  Weight: 41.5 kg

DRUGS (1)
  1. STRATTERA [Suspect]
     Indication: ATTENTION DEFICIT/HYPERACTIVITY DISORDER
     Dosage: 60 MG, QD
     Route: 048
     Dates: start: 20110914

REACTIONS (1)
  - BENIGN INTRACRANIAL HYPERTENSION [None]
